FAERS Safety Report 18713133 (Version 1)
Quarter: 2021Q1

REPORT INFORMATION
  Report Type: Spontaneous
  Country: US (occurrence: US)
  Receive Date: 20210107
  Receipt Date: 20210107
  Transmission Date: 20210419
  Serious: Yes (Life-Threatening, Hospitalization)
  Sender: FDA-Public Use
  Company Number: US-STRIDES ARCOLAB LIMITED-2021SP000181

PATIENT
  Age: 68 Year
  Sex: Male

DRUGS (4)
  1. PREDNISOLONE. [Suspect]
     Active Substance: PREDNISOLONE
     Indication: HEART TRANSPLANT
     Dosage: 15 MILLIGRAM
     Route: 065
     Dates: start: 2020
  2. TACROLIMUS. [Suspect]
     Active Substance: TACROLIMUS
     Dosage: UNK (DOSE DECREASED)
     Route: 065
     Dates: start: 2020
  3. MYCOPHENOLATE MOFETIL. [Suspect]
     Active Substance: MYCOPHENOLATE MOFETIL
     Indication: HEART TRANSPLANT
     Dosage: 2000 MILLIGRAM
     Route: 065
     Dates: start: 2020
  4. TACROLIMUS. [Suspect]
     Active Substance: TACROLIMUS
     Indication: HEART TRANSPLANT
     Dosage: 6 MILLIGRAM
     Route: 065
     Dates: start: 2020

REACTIONS (6)
  - Acute respiratory distress syndrome [Recovered/Resolved]
  - Staphylococcal infection [Recovered/Resolved]
  - Acute respiratory failure [Recovered/Resolved]
  - Wound infection [Recovered/Resolved]
  - Acute kidney injury [Recovered/Resolved]
  - COVID-19 [Recovered/Resolved]

NARRATIVE: CASE EVENT DATE: 2020
